FAERS Safety Report 24113262 (Version 1)
Quarter: 2024Q3

REPORT INFORMATION
  Report Type: Spontaneous
  Country: CN (occurrence: CN)
  Receive Date: 20240719
  Receipt Date: 20240719
  Transmission Date: 20241017
  Serious: Yes (Hospitalization, Disabling)
  Sender: ELI LILLY AND CO
  Company Number: CN-Merck Healthcare KGaA-2024037754

PATIENT
  Age: 63 Year
  Sex: Female
  Weight: 90 kg

DRUGS (3)
  1. ERBITUX [Suspect]
     Active Substance: CETUXIMAB
     Indication: Colon cancer metastatic
     Dosage: 900 MG, UNK
     Route: 041
     Dates: start: 20240522
  2. RALTITREXED [Suspect]
     Active Substance: RALTITREXED
     Indication: Colon cancer metastatic
     Dosage: 4 MG, UNK
     Route: 041
     Dates: start: 20240523, end: 20240523
  3. IRINOTECAN HYDROCHLORIDE [Suspect]
     Active Substance: IRINOTECAN HYDROCHLORIDE
     Indication: Colon cancer metastatic
     Dosage: 380 MG, UNK
     Route: 041
     Dates: start: 20240523, end: 20240523

REACTIONS (4)
  - Myelosuppression [Recovering/Resolving]
  - Platelet count decreased [Recovering/Resolving]
  - White blood cell count decreased [Recovering/Resolving]
  - Infection [Recovering/Resolving]

NARRATIVE: CASE EVENT DATE: 20240601
